FAERS Safety Report 8603832-9 (Version None)
Quarter: 2012Q3

REPORT INFORMATION
  Report Type: 
  Country: None (occurrence: None)
  Receive Date: 20120818
  Receipt Date: 20110926
  Transmission Date: 20120928
  Serious: Yes (Other)
  Sender: FDA-Public Use
  Company Number: PHEH2011US013182

PATIENT
  Sex: Female

DRUGS (7)
  1. CRESTOR [Concomitant]
     Dosage: 20 MG,1 XDAY
  2. PRESERVISION /FRA/ [Concomitant]
  3. FISH OIL [Concomitant]
     Dosage: 1200 MG, BID
  4. NEXIUM [Concomitant]
     Dosage: 40 MG, 1XDAY
  5. EXELON [Suspect]
     Dosage: 4.6 MG\24HRS
     Route: 062
  6. ASPIRIN [Concomitant]
     Dosage: 81 MG, 1XDAY
  7. MOBIC [Concomitant]
     Dosage: 7.5 MG, BID

REACTIONS (1)
  - ARTERIOSCLEROSIS [None]
